FAERS Safety Report 13815058 (Version 1)
Quarter: 2017Q3

REPORT INFORMATION
  Report Type: Spontaneous
  Country: US (occurrence: US)
  Receive Date: 20170731
  Receipt Date: 20170731
  Transmission Date: 20171127
  Serious: No
  Sender: FDA-Public Use
  Company Number: US-BAUSCH-BL-2017-017726

PATIENT
  Age: 82 Year
  Sex: Female
  Weight: 66.74 kg

DRUGS (4)
  1. OPCON-A [Suspect]
     Active Substance: NAPHAZOLINE HYDROCHLORIDE\PHENIRAMINE MALEATE
     Indication: HYPERSENSITIVITY
     Dosage: TWO DROPS INSTILLED IN EACH EYE UP TO TWICE DAILY
     Route: 047
     Dates: start: 20170522
  2. ALAWAY [Suspect]
     Active Substance: KETOTIFEN FUMARATE
     Indication: HYPERSENSITIVITY
     Route: 047
     Dates: start: 20170522
  3. ALAWAY [Suspect]
     Active Substance: KETOTIFEN FUMARATE
     Route: 047
  4. ALAWAY [Suspect]
     Active Substance: KETOTIFEN FUMARATE
     Route: 047
     Dates: start: 20170526

REACTIONS (2)
  - Drug hypersensitivity [Unknown]
  - Eyelid oedema [Unknown]

NARRATIVE: CASE EVENT DATE: 201705
